FAERS Safety Report 9606125 (Version 1)
Quarter: 2013Q4

REPORT INFORMATION
  Report Type: Spontaneous
  Country: US (occurrence: US)
  Receive Date: 20131008
  Receipt Date: 20131008
  Transmission Date: 20140711
  Serious: No
  Sender: FDA-Public Use
  Company Number: US-AMGEN-USASP2013043385

PATIENT
  Age: 80 Year
  Sex: Female

DRUGS (10)
  1. PROLIA [Suspect]
     Indication: OSTEOPOROSIS
  2. EXELON                             /01383201/ [Concomitant]
  3. NAMENDA [Concomitant]
  4. MELOXICAM [Concomitant]
  5. SERTRALINE [Concomitant]
  6. SIMVASTATIN [Concomitant]
  7. ASPIRIN [Concomitant]
  8. VITAMIN D2 + CALCIUM               /00398101/ [Concomitant]
  9. GLUCOSAMINE [Concomitant]
  10. OMEGA 3 FISH OIL [Concomitant]

REACTIONS (2)
  - Urinary tract infection [Unknown]
  - Fall [Unknown]
